FAERS Safety Report 13662309 (Version 1)
Quarter: 2017Q2

REPORT INFORMATION
  Report Type: Report from Study
  Country: US (occurrence: US)
  Receive Date: 20170617
  Receipt Date: 20170617
  Transmission Date: 20170830
  Serious: Yes (Death, Hospitalization)
  Sender: FDA-Public Use
  Company Number: US-TORRENT-00003087

PATIENT
  Age: 54 Year
  Sex: Male

DRUGS (6)
  1. HYDROMORPHONE HYDROCHLORIDE. [Suspect]
     Active Substance: HYDROMORPHONE HYDROCHLORIDE
  2. ALPRAZOLAM. [Suspect]
     Active Substance: ALPRAZOLAM
  3. ZOLPIDEM TARTRATE. [Suspect]
     Active Substance: ZOLPIDEM TARTRATE
  4. HYDROCODONE [Suspect]
     Active Substance: HYDROCODONE
  5. CARISOPRODOL. [Suspect]
     Active Substance: CARISOPRODOL
  6. PARACETAMOL [Suspect]
     Active Substance: ACETAMINOPHEN

REACTIONS (1)
  - Toxicity to various agents [Fatal]
